FAERS Safety Report 17014571 (Version 2)
Quarter: 2019Q4

REPORT INFORMATION
  Report Type: Spontaneous
  Country: IT (occurrence: IT)
  Receive Date: 20191111
  Receipt Date: 20191118
  Transmission Date: 20200122
  Serious: Yes (Hospitalization, Other)
  Sender: FDA-Public Use
  Company Number: IT-LUPIN PHARMACEUTICALS INC.-2019-07145

PATIENT
  Age: 32 Year
  Sex: Male
  Weight: 150 kg

DRUGS (1)
  1. CLOBETASOL [Suspect]
     Active Substance: CLOBETASOL
     Indication: PSORIASIS
     Dosage: 100 GRAM PER WEEK
     Route: 061

REACTIONS (4)
  - Cushing^s syndrome [Recovered/Resolved]
  - Osteoporotic fracture [Unknown]
  - Spinal compression fracture [Unknown]
  - Drug abuse [Unknown]
